FAERS Safety Report 8948271 (Version 3)
Quarter: 2013Q1

REPORT INFORMATION
  Report Type: Spontaneous
  Country: GB (occurrence: GB)
  Receive Date: 20121206
  Receipt Date: 20130109
  Transmission Date: 20140127
  Serious: Yes (Death, Other)
  Sender: FDA-Public Use
  Company Number: PHFR2012GB006282

PATIENT
  Sex: Female

DRUGS (8)
  1. CLOZARIL [Suspect]
     Indication: SCHIZOPHRENIA
     Dosage: UNK
     Route: 048
     Dates: start: 20030703
  2. CLOZARIL [Suspect]
     Dosage: 275 MG, UNK
     Route: 048
  3. AMISULPRIDE [Concomitant]
     Dosage: 300 MG, UNK
     Route: 048
  4. DIAZEPAM [Concomitant]
     Dosage: 12.5 MG, UNK
     Route: 048
  5. HYOSCINE HYDROBROMIDE [Concomitant]
     Dosage: 900 UG, UNK
     Route: 048
  6. THYROXINE [Concomitant]
     Dosage: 100 UG, UNK
     Route: 048
  7. NOVOMIX [Concomitant]
  8. ZOPICLONE [Concomitant]
     Dosage: 7.5 MG, UNK
     Route: 048

REACTIONS (5)
  - Cardiopulmonary failure [Fatal]
  - Diabetes mellitus [Fatal]
  - Obesity [Fatal]
  - Lung neoplasm malignant [Unknown]
  - Blood alkaline phosphatase increased [Unknown]
